FAERS Safety Report 18490377 (Version 4)
Quarter: 2020Q4

REPORT INFORMATION
  Report Type: Report from Study
  Country: None (occurrence: PT)
  Receive Date: 20201111
  Receipt Date: 20201129
  Transmission Date: 20210114
  Serious: Yes (Hospitalization)
  Sender: FDA-Public Use
  Company Number: PT-ABBVIE-20K-130-3640248-00

PATIENT
  Age: 68 Year
  Sex: Female

DRUGS (5)
  1. DUODOPA [Suspect]
     Active Substance: CARBIDOPA\LEVODOPA
     Dosage: 20 MG + 5 MG; MORNING DOSE:10ML; MAINTENANCE:3.6CC/H
     Route: 050
     Dates: start: 2020, end: 20201123
  2. DUODOPA [Suspect]
     Active Substance: CARBIDOPA\LEVODOPA
     Indication: PARKINSON^S DISEASE
     Dosage: 20 MG + 5 MG?MD 10ML, CD 3.0ML, ED 0.5ML, BLOCKAGE LEVEL LL0, MAINTENANCE: 3ML
     Route: 050
     Dates: start: 20201029, end: 2020
  3. DUODOPA [Suspect]
     Active Substance: CARBIDOPA\LEVODOPA
     Dosage: 20 MG + 5 MG; MORNING DOSE:10ML; MAINTENANCE:3.2CC/H
     Route: 050
     Dates: start: 2020, end: 2020
  4. DUODOPA [Suspect]
     Active Substance: CARBIDOPA\LEVODOPA
     Dosage: MORNING DOSE 10ML, MAINTENANCE DOSE 3.0ML AND EXTRA DOSE 1.0ML, BLOCKADE LEVEL LL0.
     Route: 050
     Dates: start: 2020, end: 2020
  5. DUODOPA [Suspect]
     Active Substance: CARBIDOPA\LEVODOPA
     Dosage: 20 MG + 5 MG; MORNING DOSE:10CC/H; MAINTENANCE:3.4CC/H
     Route: 050
     Dates: start: 20201123

REACTIONS (9)
  - Gait disturbance [Recovered/Resolved]
  - Device dislocation [Recovered/Resolved]
  - Abdominal pain [Recovered/Resolved]
  - Unresponsive to stimuli [Recovered/Resolved]
  - Incorrect route of product administration [Unknown]
  - Stoma site inflammation [Recovered/Resolved]
  - Stoma site discharge [Recovered/Resolved]
  - Off label use [Unknown]
  - Dyskinesia [Not Recovered/Not Resolved]

NARRATIVE: CASE EVENT DATE: 2020
